FAERS Safety Report 6284643-9 (Version None)
Quarter: 2009Q3

REPORT INFORMATION
  Report Type: 
  Country: None (occurrence: None)
  Receive Date: 20090723
  Receipt Date: 20090717
  Transmission Date: 20100115
  Serious: Yes (Hospitalization)
  Sender: FDA-Public Use
  Company Number: SPV1-2009-01477

PATIENT
  Age: 61 Year
  Sex: Female

DRUGS (1)
  1. FOSRENOL [Suspect]
     Route: 002

REACTIONS (3)
  - DYSPNOEA [None]
  - HYPERTENSION [None]
  - NON-CARDIAC CHEST PAIN [None]
